FAERS Safety Report 11292160 (Version 1)
Quarter: 2015Q3

REPORT INFORMATION
  Report Type: Spontaneous
  Country: FR (occurrence: FR)
  Receive Date: 20150722
  Receipt Date: 20150722
  Transmission Date: 20151125
  Serious: Yes (Hospitalization)
  Sender: FDA-Public Use
  Company Number: FR-PFIZER INC-2015238983

PATIENT
  Age: 15 Year
  Sex: Male

DRUGS (4)
  1. CIPROFLOXACINE MYLAN [Suspect]
     Active Substance: CIPROFLOXACIN
     Indication: MEDICAL DEVICE SITE INFECTION
     Dosage: UNK
     Route: 048
     Dates: start: 20141011, end: 20141021
  2. CIPROFLOXACINE KABI [Suspect]
     Active Substance: CIPROFLOXACIN
     Indication: MEDICAL DEVICE SITE INFECTION
     Dosage: 1 DF, 2X/DAY
     Route: 042
     Dates: start: 20140924, end: 20141011
  3. DALACINE [Suspect]
     Active Substance: CLINDAMYCIN HYDROCHLORIDE
     Indication: MEDICAL DEVICE SITE INFECTION
     Dosage: 600 MG, 3X/DAY
     Route: 048
     Dates: start: 20141011, end: 20141021
  4. CEFOTAXIME [Concomitant]
     Active Substance: CEFOTAXIME SODIUM
     Indication: MEDICAL DEVICE SITE INFECTION
     Dosage: 500 MG, 3X/DAY
     Route: 042
     Dates: start: 20140926, end: 20141011

REACTIONS (3)
  - Skin lesion [Recovered/Resolved]
  - Rash erythematous [Recovered/Resolved]
  - Pruritus [Recovered/Resolved]

NARRATIVE: CASE EVENT DATE: 20141018
